FAERS Safety Report 25090293 (Version 1)
Quarter: 2025Q1

REPORT INFORMATION
  Report Type: Report from Study
  Country: EG (occurrence: EG)
  Receive Date: 20250318
  Receipt Date: 20250318
  Transmission Date: 20250409
  Serious: No
  Sender: SANDOZ
  Company Number: EG-002147023-NVSC2023EG101614

PATIENT
  Age: 11 Year
  Sex: Male

DRUGS (4)
  1. OMNITROPE [Suspect]
     Active Substance: SOMATROPIN
     Indication: Growth hormone deficiency
     Dosage: 1 MG, QD
     Route: 058
     Dates: start: 202205
  2. OMNITROPE [Suspect]
     Active Substance: SOMATROPIN
     Dosage: 1.2 MG, QD (INCREASED TO 1.2 MG/DAY DUE TO THE NORMAL GROWTH RATE)
     Route: 065
     Dates: end: 20230422
  3. Decapeptyl [Concomitant]
     Indication: Product used for unknown indication
     Route: 065
  4. GOSERELIN [Concomitant]
     Active Substance: GOSERELIN
     Indication: Precocious puberty
     Dosage: 1 DOSAGE FORM, QMO (STARTED 2 YEARS AGO,1 AMPOULE INJECTED EVERY 28 DAY)
     Route: 042

REACTIONS (5)
  - Device issue [Recovered/Resolved]
  - Wrong technique in product usage process [Recovered/Resolved]
  - Device use issue [Recovered/Resolved]
  - Product preparation error [Recovered/Resolved]
  - Expired device used [Unknown]

NARRATIVE: CASE EVENT DATE: 20220501
